FAERS Safety Report 8820771 (Version 1)
Quarter: 2012Q4

REPORT INFORMATION
  Report Type: 
  Country: DE (occurrence: DE)
  Receive Date: 20121002
  Receipt Date: 20121002
  Transmission Date: 20130627
  Serious: Yes (Other)
  Sender: FDA-Public Use
  Company Number: DE-ROCHE-1139980

PATIENT
  Sex: Male

DRUGS (4)
  1. ZELBORAF [Suspect]
     Indication: PRODUCT USED FOR UNKNOWN INDICATION
  2. NOVALGIN [Suspect]
     Indication: PRODUCT USED FOR UNKNOWN INDICATION
  3. SODIUM PERCHLORATE MONOHYDRATE [Suspect]
     Indication: PRODUCT USED FOR UNKNOWN INDICATION
  4. THIAMAZOL [Suspect]
     Indication: PRODUCT USED FOR UNKNOWN INDICATION

REACTIONS (2)
  - Compartment syndrome [Unknown]
  - Agranulocytosis [Recovered/Resolved]
